FAERS Safety Report 8405035-X (Version None)
Quarter: 2012Q2

REPORT INFORMATION
  Report Type: 
  Country: None (occurrence: None)
  Receive Date: 20120601
  Receipt Date: 20111230
  Transmission Date: 20120825
  Serious: No
  Sender: FDA-Public Use
  Company Number: US-NOVEN-11US003854

PATIENT
  Age: 9 Year
  Sex: Male

DRUGS (3)
  1. MELATONIN [Concomitant]
     Indication: SLEEP DISORDER
     Route: 048
  2. DAYTRANA [Suspect]
     Indication: ATTENTION DEFICIT/HYPERACTIVITY DISORDER
     Dosage: 10 MG, QD
     Route: 062
     Dates: start: 20111229
  3. ABILIFY [Concomitant]
     Indication: PRODUCT USED FOR UNKNOWN INDICATION
     Dosage: 30 MG, UNK
     Route: 048

REACTIONS (1)
  - APPLICATION SITE ERYTHEMA [None]
